FAERS Safety Report 10698701 (Version 2)
Quarter: 2015Q1

REPORT INFORMATION
  Report Type: Spontaneous
  Country: HU (occurrence: HU)
  Receive Date: 20150108
  Receipt Date: 20150113
  Transmission Date: 20150721
  Serious: Yes (Other)
  Sender: FDA-Public Use
  Company Number: HU-PFIZER INC-2015002830

PATIENT
  Age: 73 Year
  Sex: Male

DRUGS (2)
  1. CARDURA XL [Suspect]
     Active Substance: DOXAZOSIN MESYLATE
     Dosage: 1 DF, 2X/DAY (IN THE MORNING AND EVENING)
  2. VALERIANA [Concomitant]
     Active Substance: VALERIAN
     Indication: HEADACHE
     Dosage: UNK

REACTIONS (2)
  - Blood pressure increased [Unknown]
  - Headache [Unknown]
